FAERS Safety Report 10145646 (Version 1)
Quarter: 2014Q2

REPORT INFORMATION
  Report Type: Spontaneous
  Country: FI (occurrence: FI)
  Receive Date: 20140501
  Receipt Date: 20140501
  Transmission Date: 20141212
  Serious: Yes (Hospitalization)
  Sender: FDA-Public Use
  Company Number: PHHY2014FI051041

PATIENT
  Age: 63 Year
  Sex: Male

DRUGS (7)
  1. SANDIMMUN [Suspect]
     Indication: IMMUNOSUPPRESSION
     Dosage: 150 MG, QD
  2. SANDIMMUN [Suspect]
     Dosage: 125 MG, QD
  3. SANDIMMUN [Suspect]
     Dosage: 100 MG, BID
     Dates: start: 20110201
  4. CELLCEPT [Suspect]
     Dosage: 1 G, BID
  5. MEDROL [Suspect]
     Dosage: 12 MG, QD
  6. MEDROL [Suspect]
     Dosage: 8 MG, QD
     Dates: start: 20110211
  7. MEDROL [Suspect]
     Dosage: 4 MG, QD
     Dates: start: 20110215

REACTIONS (5)
  - Insulin resistance [Unknown]
  - Blood glucose increased [Unknown]
  - Malaise [Unknown]
  - Weight decreased [Unknown]
  - Nausea [Unknown]
